FAERS Safety Report 15984473 (Version 1)
Quarter: 2019Q1

REPORT INFORMATION
  Report Type: Spontaneous
  Country: DE (occurrence: DE)
  Receive Date: 20190220
  Receipt Date: 20190220
  Transmission Date: 20190418
  Serious: Yes (Life-Threatening)
  Sender: FDA-Public Use
  Company Number: DE-TEVA-2019-DE-1013364

PATIENT

DRUGS (2)
  1. CISPLATIN TEVA 1MG/ML [Suspect]
     Active Substance: CISPLATIN
     Route: 065
  2. ETO-GRY (ETOPOSIDE) [Suspect]
     Active Substance: ETOPOSIDE
     Route: 065

REACTIONS (1)
  - Drug ineffective [Unknown]
